FAERS Safety Report 10551412 (Version 3)
Quarter: 2014Q4

REPORT INFORMATION
  Report Type: Report from Study
  Country: GB (occurrence: GB)
  Receive Date: 20141029
  Receipt Date: 20141121
  Transmission Date: 20150529
  Serious: Yes (Other)
  Sender: FDA-Public Use
  Company Number: GB-JNJFOC-20141017626

PATIENT
  Sex: Female

DRUGS (1)
  1. SIMPONI [Suspect]
     Active Substance: GOLIMUMAB
     Indication: PRODUCT USED FOR UNKNOWN INDICATION
     Route: 058

REACTIONS (4)
  - Influenza [Recovered/Resolved]
  - Swelling [Recovering/Resolving]
  - Haematemesis [Unknown]
  - Multi-organ disorder [Unknown]

NARRATIVE: CASE EVENT DATE: 2014
